FAERS Safety Report 17705849 (Version 1)
Quarter: 2020Q2

REPORT INFORMATION
  Report Type: Spontaneous
  Country: FR (occurrence: FR)
  Receive Date: 20200424
  Receipt Date: 20200424
  Transmission Date: 20200714
  Serious: Yes (Other)
  Sender: FDA-Public Use
  Company Number: FR-TEVA-2020-FR-1226297

PATIENT
  Age: 54 Year
  Sex: Female
  Weight: 79.5 kg

DRUGS (5)
  1. FULVESTRANT. [Suspect]
     Active Substance: FULVESTRANT
     Indication: BREAST CANCER
     Dosage: 500 MG
     Route: 030
     Dates: start: 20160318, end: 20180529
  2. IBRANCE [Suspect]
     Active Substance: PALBOCICLIB
     Indication: BREAST CANCER
     Dosage: 125 MG
     Route: 048
     Dates: start: 20180516, end: 20180605
  3. VITAMIN D3 [Concomitant]
     Active Substance: CHOLECALCIFEROL
     Indication: OSTEOPOROSIS PROPHYLAXIS
     Dosage: 250 MG
     Route: 048
     Dates: start: 201306
  4. DENOSUMAB [Concomitant]
     Active Substance: DENOSUMAB
     Indication: OSTEOPOROSIS
     Dosage: UNINFORMED
     Route: 058
     Dates: start: 201306
  5. CALCIUM (CARBONATE DE) [Concomitant]
     Active Substance: CALCIUM CARBONATE
     Indication: OSTEOPOROSIS PROPHYLAXIS
     Dosage: 250 MG
     Route: 048
     Dates: start: 201306

REACTIONS (1)
  - Neutropenia [Recovered/Resolved]

NARRATIVE: CASE EVENT DATE: 20180612
